FAERS Safety Report 10579151 (Version 5)
Quarter: 2015Q1

REPORT INFORMATION
  Report Type: Report from Study
  Country: US (occurrence: US)
  Receive Date: 20141112
  Receipt Date: 20150128
  Transmission Date: 20150720
  Serious: Yes (Hospitalization)
  Sender: FDA-Public Use
  Company Number: US-ACTELION-A-US2014-107782

PATIENT
  Age: 45 Year
  Sex: Female

DRUGS (14)
  1. COUMADIN [Suspect]
     Active Substance: WARFARIN SODIUM
     Indication: THROMBOSIS
     Dosage: 4 MG, QD
     Route: 065
     Dates: start: 201410
  2. FOLIC ACID. [Concomitant]
     Active Substance: FOLIC ACID
     Dosage: 1 MG, QD
     Dates: start: 2013
  3. L-THYROXINE [Concomitant]
     Active Substance: LEVOTHYROXINE
     Dosage: 88 MCG, UNK
     Dates: start: 2013
  4. PREDNISONE. [Concomitant]
     Active Substance: PREDNISONE
     Dosage: 2.5 MG, QD
     Dates: start: 2010
  5. METFORMIN [Concomitant]
     Active Substance: METFORMIN HYDROCHLORIDE
     Dosage: 1000 MG, BID
     Dates: start: 2006
  6. OMEPRAZOLE. [Concomitant]
     Active Substance: OMEPRAZOLE
     Dosage: 40 MG, UNK
     Dates: start: 201406
  7. ALDACTONE [Concomitant]
     Active Substance: SPIRONOLACTONE
     Dosage: 25 MG, QD
     Dates: start: 201408
  8. CALCIUM WITH VITAMIN D [Concomitant]
     Active Substance: CALCIUM\VITAMIN D
     Dosage: 600 MG, QD
     Dates: start: 2012
  9. MEROPENEM. [Suspect]
     Active Substance: MEROPENEM
     Indication: PYREXIA
     Dosage: 1 G, UNK
     Route: 065
     Dates: start: 20141112, end: 20141119
  10. TYVASO [Concomitant]
     Active Substance: TREPROSTINIL
     Dosage: 6 BREATHS
  11. LASIX [Concomitant]
     Active Substance: FUROSEMIDE
     Dosage: 40 MG, UNK
     Dates: start: 201408
  12. DIGOXIN. [Concomitant]
     Active Substance: DIGOXIN
     Dosage: 25 MCG, UNK
     Dates: start: 201410
  13. MACITENTAN [Suspect]
     Active Substance: MACITENTAN
     Indication: PULMONARY ARTERIAL HYPERTENSION
     Dosage: 10 MG, QD
     Route: 048
     Dates: start: 201410
  14. SILDENAFIL. [Concomitant]
     Active Substance: SILDENAFIL
     Dosage: 20 MG, Q8HR
     Dates: start: 201408

REACTIONS (23)
  - Wound treatment [Recovered/Resolved]
  - Diarrhoea [Recovered/Resolved]
  - Pyrexia [Not Recovered/Not Resolved]
  - Wound complication [Not Recovered/Not Resolved]
  - Neck mass [Recovered/Resolved]
  - Myalgia [Recovered/Resolved]
  - Infection [Unknown]
  - Chest pain [Recovered/Resolved]
  - Cough [Unknown]
  - Abdominal pain [Unknown]
  - Thrombosis [Recovered/Resolved]
  - Nausea [Recovered/Resolved]
  - Insomnia [Recovered/Resolved]
  - Coagulation time shortened [Not Recovered/Not Resolved]
  - Skin ulcer [Not Recovered/Not Resolved]
  - Paraesthesia [Recovered/Resolved]
  - Hypoaesthesia [Recovered/Resolved]
  - Vomiting [Recovered/Resolved]
  - Headache [Recovered/Resolved]
  - Ear pain [Not Recovered/Not Resolved]
  - Pyrexia [Unknown]
  - Blood potassium decreased [Not Recovered/Not Resolved]
  - Pyoderma gangrenosum [Not Recovered/Not Resolved]

NARRATIVE: CASE EVENT DATE: 201410
